FAERS Safety Report 5311583-1 (Version None)
Quarter: 2007Q2

REPORT INFORMATION
  Report Type: 
  Country: None (occurrence: None)
  Receive Date: 20070430
  Receipt Date: 20070418
  Transmission Date: 20071010
  Serious: Yes (Death, Hospitalization)
  Sender: FDA-Public Use
  Company Number: US-ROCHE-492374

PATIENT
  Age: 65 Year
  Sex: Male
  Weight: 83.5 kg

DRUGS (16)
  1. CAPECITABINE [Suspect]
     Dosage: TAKEN TWICE-DAILY IN EQUALLY DIVIDED DOSES MORNING AND EVENING DAYS 1-8 (FIRST DOSE THE EVENING OF +
     Route: 048
     Dates: start: 20070314
  2. BEVACIZUMAB [Suspect]
     Dosage: 5 MG/KG GIVEN ON DAY ONE OF TWO WEEK CYCLE AS PER PROTOCOL.
     Route: 042
     Dates: start: 20070314
  3. OXALIPLATIN [Suspect]
     Dosage: 85 MG/M2 VIA 2-HOUR IV INFUSION ADMINISTERED ON DAY 1 OF 2 WEEK CYCLE AS PER PROTOCOL.
     Route: 042
     Dates: start: 20070314
  4. TOPROL-XL [Concomitant]
     Dates: start: 19920101
  5. PLAVIX [Concomitant]
     Dates: start: 19920101
  6. ASPIRIN [Concomitant]
     Dates: start: 19920101
  7. LOTREL [Concomitant]
     Dates: start: 19920101
  8. LIPITOR [Concomitant]
     Dates: start: 19920101
  9. METFORMIN HCL [Concomitant]
     Dosage: DRUG REPORTED AS ^METFORIN^.
  10. GLYBURIDE [Concomitant]
  11. MAGIC MOUTHWASH NOS [Concomitant]
     Dates: start: 20070328
  12. PROTONIX [Concomitant]
     Dates: start: 20070314
  13. COMPAZINE [Concomitant]
     Dates: start: 20070314
  14. ATIVAN [Concomitant]
     Dates: start: 20070314
  15. VICODIN [Concomitant]
  16. IMODIUM [Concomitant]
     Dates: start: 20070314

REACTIONS (1)
  - SEPSIS [None]
